FAERS Safety Report 18698024 (Version 2)
Quarter: 2021Q1

REPORT INFORMATION
  Report Type: Spontaneous
  Country: US (occurrence: US)
  Receive Date: 20210104
  Receipt Date: 20210227
  Transmission Date: 20210419
  Serious: No
  Sender: FDA-Public Use
  Company Number: US-TAKEDA-2020TUS060552

PATIENT
  Sex: Female
  Weight: 40.82 kg

DRUGS (7)
  1. EPINEPHRINE. [Concomitant]
     Active Substance: EPINEPHRINE
     Dosage: UNK
     Route: 065
  2. ALBUTEROL SULFATE. [Concomitant]
     Active Substance: ALBUTEROL SULFATE
     Dosage: UNK
     Route: 065
  3. LIDOCAINE. [Concomitant]
     Active Substance: LIDOCAINE
     Dosage: UNK
     Route: 065
  4. FLOVENT [Concomitant]
     Active Substance: FLUTICASONE PROPIONATE
     Dosage: UNK
     Route: 065
  5. CUVITRU [Suspect]
     Active Substance: HUMAN IMMUNOGLOBULIN G
     Indication: IMMUNODEFICIENCY
     Dosage: 10 GRAM, Q2WEEKS
     Route: 058
     Dates: start: 20201119
  6. ACETAMINOPHEN. [Concomitant]
     Active Substance: ACETAMINOPHEN
     Dosage: UNK
     Route: 065
  7. DIPHENHYDRAMINE. [Concomitant]
     Active Substance: DIPHENHYDRAMINE
     Dosage: UNK
     Route: 065

REACTIONS (2)
  - Infusion site swelling [Unknown]
  - Epistaxis [Unknown]
